FAERS Safety Report 4430859-3 (Version None)
Quarter: 2004Q3

REPORT INFORMATION
  Report Type: 
  Country: None (occurrence: None)
  Receive Date: 20040823
  Receipt Date: 20020717
  Transmission Date: 20050211
  Serious: Yes (Hospitalization)
  Sender: FDA-Public Use
  Company Number: FR-GLAXOSMITHKLINE-B0274332A

PATIENT
  Sex: Male
  Weight: 2.7 kg

DRUGS (12)
  1. RETROVIR [Suspect]
     Indication: ANTIVIRAL PROPHYLAXIS
     Dosage: .7ML THREE TIMES PER DAY
     Route: 048
     Dates: start: 19980330
  2. EPIVIR [Suspect]
     Indication: ANTIVIRAL PROPHYLAXIS
     Dosage: .5ML TWICE PER DAY
     Route: 048
     Dates: start: 19980330
  3. RETROVIR [Suspect]
     Indication: HIV INFECTION
  4. EPIVIR [Suspect]
     Indication: HIV INFECTION
  5. RETROVIR [Suspect]
     Dates: start: 19980330, end: 19980330
  6. BCG [Concomitant]
     Indication: ANTIBACTERIAL PROPHYLAXIS
     Dosage: 1UNIT SINGLE DOSE
     Route: 023
     Dates: start: 19980626, end: 19980626
  7. PENTACOQ [Concomitant]
     Indication: PROPHYLAXIS
     Dosage: 1UNIT SINGLE DOSE
     Route: 042
     Dates: start: 19980721, end: 19980721
  8. PENTACOQ [Concomitant]
     Dosage: 1UNIT SINGLE DOSE
     Route: 042
     Dates: start: 19980821, end: 19980821
  9. PENTACOQ [Concomitant]
     Dosage: 1UNIT SINGLE DOSE
     Route: 042
     Dates: start: 19980921, end: 19980921
  10. SPASFON [Concomitant]
     Route: 065
  11. IRON [Concomitant]
     Route: 048
  12. MULTIVITAMIN [Concomitant]
     Route: 048

REACTIONS (17)
  - ANAEMIA [None]
  - BLOOD LACTIC ACID INCREASED [None]
  - CONJUNCTIVITIS [None]
  - DEVELOPMENTAL DELAY [None]
  - DRUG EXPOSURE DURING PREGNANCY [None]
  - GASTROOESOPHAGEAL REFLUX DISEASE [None]
  - HYDROCELE [None]
  - HYPERMETROPIA [None]
  - HYPERTONIA [None]
  - INGUINAL HERNIA [None]
  - METABOLIC DISORDER [None]
  - NASAL CONGESTION [None]
  - OBSESSIVE-COMPULSIVE DISORDER [None]
  - PLATELET COUNT INCREASED [None]
  - PSYCHOMOTOR RETARDATION [None]
  - SPEECH DISORDER DEVELOPMENTAL [None]
  - STRABISMUS [None]
